FAERS Safety Report 4433799-9 (Version None)
Quarter: 2004Q3

REPORT INFORMATION
  Report Type: 
  Country: None (occurrence: None)
  Receive Date: 20040824
  Receipt Date: 20040824
  Transmission Date: 20050211
  Serious: Yes (Hospitalization, Disabling)
  Sender: FDA-Public Use
  Company Number: None

PATIENT
  Sex: Female
  Weight: 63.5036 kg

DRUGS (7)
  1. REMICADE [Suspect]
     Indication: RHEUMATOID ARTHRITIS
     Dosage: 300MG  Q 8 WEEK  INTRAVENOUS
     Route: 042
     Dates: start: 20030814, end: 20040506
  2. METHOTREXATE [Concomitant]
  3. FOLIC ACID [Concomitant]
  4. PREDNISONE [Concomitant]
  5. MICARDIS [Concomitant]
  6. CARDIZEM CD [Concomitant]
  7. LIPITOR [Concomitant]

REACTIONS (10)
  - APHASIA [None]
  - ASTHENIA [None]
  - DIFFICULTY IN WALKING [None]
  - GLOMERULONEPHRITIS MEMBRANOUS [None]
  - MENINGEAL DISORDER [None]
  - MENINGITIS [None]
  - NUCLEAR MAGNETIC RESONANCE IMAGING ABNORMAL [None]
  - PROTEINURIA [None]
  - RHEUMATOID NODULE [None]
  - TREMOR [None]
